FAERS Safety Report 9227241 (Version 1)
Quarter: 2013Q1

REPORT INFORMATION
  Report Type: Spontaneous
  Country: US (occurrence: None)
  Receive Date: 20121012
  Receipt Date: 20121012
  Transmission Date: 20140127
  Serious: Yes (Life-Threatening)
  Sender: FDA-Public Use
  Company Number: 2012SP000087

PATIENT
  Age: 61 Year
  Sex: Female

DRUGS (3)
  1. TEMODAR (TEMOZOLOMIDE) CAPSULE [Suspect]
     Indication: GLIOBLASTOMA
     Route: 048
     Dates: start: 20110928, end: 20111130
  2. PRAVASTATIN SODIUM (PRAVASTATIN SODIUM) [Concomitant]
  3. ATENOLOL (ATENOLO) [Concomitant]

REACTIONS (2)
  - Pancytopenia [None]
  - Aplastic anaemia [None]
